FAERS Safety Report 7502229-2 (Version None)
Quarter: 2011Q2

REPORT INFORMATION
  Report Type: 
  Country: None (occurrence: None)
  Receive Date: 20110525
  Receipt Date: 20110516
  Transmission Date: 20111010
  Serious: Yes (Other)
  Sender: FDA-Public Use
  Company Number: US-AMGEN-USASP2011022109

PATIENT
  Age: 72 Year
  Sex: Male

DRUGS (5)
  1. ASPIRIN [Concomitant]
  2. PLAVIX [Concomitant]
  3. REVLIMID [Concomitant]
  4. ARANESP [Suspect]
     Indication: CHEMOTHERAPY
     Dates: start: 20110401
  5. TOPROL-XL [Concomitant]

REACTIONS (2)
  - CHEST PAIN [None]
  - BONE PAIN [None]
